FAERS Safety Report 12784278 (Version 1)
Quarter: 2016Q3

REPORT INFORMATION
  Report Type: Report from Study
  Country: US (occurrence: US)
  Receive Date: 20160927
  Receipt Date: 20160927
  Transmission Date: 20161109
  Serious: Yes (Other)
  Sender: FDA-Public Use
  Company Number: US-TEVA-695875USA

PATIENT
  Age: 43 Year
  Sex: Male

DRUGS (1)
  1. CLOZAPINE. [Suspect]
     Active Substance: CLOZAPINE
     Route: 065

REACTIONS (1)
  - Agranulocytosis [Unknown]

NARRATIVE: CASE EVENT DATE: 20160909
